FAERS Safety Report 5586840-4 (Version None)
Quarter: 2008Q1

REPORT INFORMATION
  Report Type: 
  Country: None (occurrence: None)
  Receive Date: 20080108
  Receipt Date: 20080108
  Transmission Date: 20080703
  Serious: Yes (Disabling, Other)
  Sender: FDA-Public Use
  Company Number: None

PATIENT
  Age: 34 Year
  Sex: Female
  Weight: 58.9676 kg

DRUGS (2)
  1. LEVAQUIN [Suspect]
     Indication: PNEUMONIA
     Dosage: 1 TABLET   DAILY  PO
     Route: 048
     Dates: start: 20071210, end: 20071219
  2. LEVAQUIN [Suspect]
     Indication: SINUSITIS
     Dosage: 1 TABLET   DAILY  PO
     Route: 048
     Dates: start: 20071210, end: 20071219

REACTIONS (7)
  - ARTHRALGIA [None]
  - COXSACKIE VIRAL INFECTION [None]
  - NO THERAPEUTIC RESPONSE [None]
  - OEDEMA PERIPHERAL [None]
  - PALPITATIONS [None]
  - PYREXIA [None]
  - RASH [None]
